FAERS Safety Report 6544657-8 (Version None)
Quarter: 2010Q1

REPORT INFORMATION
  Report Type: 
  Country: None (occurrence: None)
  Receive Date: 20100121
  Receipt Date: 20100105
  Transmission Date: 20100710
  Serious: Yes (Hospitalization, Other)
  Sender: FDA-Public Use
  Company Number: JP-BAYER-200811164BYL

PATIENT
  Age: 66 Year
  Sex: Male
  Weight: 67 kg

DRUGS (14)
  1. NEXAVAR [Suspect]
     Indication: RENAL CELL CARCINOMA
     Dosage: AS USED: 400 MG  UNIT DOSE: 200 MG
     Route: 048
     Dates: start: 20080501, end: 20080503
  2. NEXAVAR [Suspect]
     Dosage: AS USED: 400 MG  UNIT DOSE: 200 MG
     Route: 048
     Dates: start: 20080519
  3. NOVAMIN [Concomitant]
     Dosage: TOTAL DAILY DOSE: 15 MG  UNIT DOSE: 5 MG
     Route: 048
     Dates: start: 20080501, end: 20080610
  4. MUCOSTA [Concomitant]
     Dosage: TOTAL DAILY DOSE: 300 MG  UNIT DOSE: 100 MG
     Route: 048
     Dates: start: 20080501, end: 20080610
  5. MAGNESIUM OXIDE [Concomitant]
     Dosage: TOTAL DAILY DOSE: 1.5 G  UNIT DOSE: 0.5 G
     Route: 048
     Dates: start: 20080501, end: 20080610
  6. DOMPERIDONE [Concomitant]
     Dosage: TOTAL DAILY DOSE: 30 MG  UNIT DOSE: 10 MG
     Route: 048
     Dates: start: 20080501, end: 20080610
  7. ASPARA-CA [Concomitant]
     Dosage: TOTAL DAILY DOSE: 800 MG  UNIT DOSE: 200 MG
     Route: 048
     Dates: start: 20080501
  8. OXYCONTIN [Concomitant]
     Dosage: TOTAL DAILY DOSE: 30 MG  UNIT DOSE: 10 MG
     Route: 048
     Dates: start: 20080501
  9. RILMAZAFONE HYDROCHLORIDE [Concomitant]
     Route: 048
     Dates: start: 20080508, end: 20080508
  10. ZOLOFT [Concomitant]
     Dosage: TOTAL DAILY DOSE: 25 MG  UNIT DOSE: 25 MG
     Route: 048
     Dates: start: 20080509
  11. LENDORMIN D [Concomitant]
     Route: 048
     Dates: start: 20080509, end: 20090108
  12. MYSLEE [Concomitant]
     Route: 048
     Dates: start: 20080511, end: 20080511
  13. SILECE [Concomitant]
     Dosage: TOTAL DAILY DOSE: 1 MG  UNIT DOSE: 1 MG
     Route: 048
     Dates: start: 20080515
  14. LOXOPROFEN [Concomitant]
     Route: 048
     Dates: start: 20090402

REACTIONS (19)
  - ADRENAL INSUFFICIENCY [None]
  - ASPARTATE AMINOTRANSFERASE INCREASED [None]
  - BLOOD ALKALINE PHOSPHATASE INCREASED [None]
  - BLOOD AMYLASE INCREASED [None]
  - BLOOD LACTATE DEHYDROGENASE INCREASED [None]
  - BLOOD PHOSPHORUS DECREASED [None]
  - BLOOD THYROID STIMULATING HORMONE INCREASED [None]
  - DIARRHOEA [None]
  - DYSPHONIA [None]
  - GLOSSODYNIA [None]
  - HAEMATURIA [None]
  - HYPERTENSION [None]
  - HYPOTHYROIDISM [None]
  - LIPASE INCREASED [None]
  - PALMAR-PLANTAR ERYTHRODYSAESTHESIA SYNDROME [None]
  - PYREXIA [None]
  - SKIN ATROPHY [None]
  - STOMATITIS [None]
  - TINNITUS [None]
